FAERS Safety Report 16934473 (Version 1)
Quarter: 2019Q4

REPORT INFORMATION
  Report Type: Spontaneous
  Country: US (occurrence: US)
  Receive Date: 20191018
  Receipt Date: 20191018
  Transmission Date: 20200122
  Serious: No
  Sender: FDA-Public Use
  Company Number: US-GLAXOSMITHKLINE-US2019AMR184857

PATIENT
  Sex: Female

DRUGS (1)
  1. BUPROPION SR PROLONGED-RELEASE TABLET [Suspect]
     Active Substance: BUPROPION
     Indication: DEPRESSION
     Dosage: UNK
     Route: 065
     Dates: start: 201810

REACTIONS (4)
  - Fatigue [Unknown]
  - Depressed mood [Unknown]
  - Depression [Unknown]
  - Adverse drug reaction [Unknown]
